FAERS Safety Report 13985987 (Version 1)
Quarter: 2017Q3

REPORT INFORMATION
  Report Type: Spontaneous
  Country: US (occurrence: US)
  Receive Date: 20170919
  Receipt Date: 20170919
  Transmission Date: 20171128
  Serious: Yes (Other)
  Sender: FDA-Public Use
  Company Number: US-PURDUE PHARMA-USA-2017-0140742

PATIENT
  Sex: Male

DRUGS (2)
  1. OXYCODONE HYDROCHLORIDE (SIMILAR TO NDA 22-272) [Suspect]
     Active Substance: OXYCODONE HYDROCHLORIDE
     Indication: NEURALGIA
     Dosage: 1 DF, PRN
     Route: 048
     Dates: start: 2003
  2. OXYCONTIN [Suspect]
     Active Substance: OXYCODONE HYDROCHLORIDE
     Indication: NEURALGIA
     Dosage: 60 MG, BID
     Route: 048
     Dates: start: 2003

REACTIONS (4)
  - Renal transplant [Recovered/Resolved]
  - Blood pressure fluctuation [Not Recovered/Not Resolved]
  - Drug ineffective [Not Recovered/Not Resolved]
  - Oedema [Not Recovered/Not Resolved]

NARRATIVE: CASE EVENT DATE: 2013
